FAERS Safety Report 8457636-0 (Version None)
Quarter: 2012Q2

REPORT INFORMATION
  Report Type: 
  Country: None (occurrence: None)
  Receive Date: 20120622
  Receipt Date: 20111123
  Transmission Date: 20120825
  Serious: No
  Sender: FDA-Public Use
  Company Number: US-BAYER-2011-113957

PATIENT
  Age: 40 Year
  Sex: Female
  Weight: 63.492 kg

DRUGS (4)
  1. LABETALOL HCL [Concomitant]
  2. SYNTHROID [Concomitant]
  3. MAGNEVIST [Suspect]
     Indication: NUCLEAR MAGNETIC RESONANCE IMAGING BRAIN
     Dosage: 13 ML, ONCE, RIGHT ARM
     Route: 042
     Dates: start: 20111123, end: 20111123
  4. AMITRIPTYLINE HCL [Concomitant]

REACTIONS (2)
  - COUGH [None]
  - PRURITUS [None]
